FAERS Safety Report 4872801-7 (Version None)
Quarter: 2005Q4

REPORT INFORMATION
  Report Type: 
  Country: None (occurrence: None)
  Receive Date: 20051201
  Receipt Date: 20050707
  Transmission Date: 20060501
  Serious: No
  Sender: FDA-Public Use
  Company Number: 2005PV000324

PATIENT
  Age: 51 Year
  Sex: Male
  Weight: 163.7485 kg

DRUGS (6)
  1. BYETTA [Suspect]
     Indication: DIABETES MELLITUS NON-INSULIN-DEPENDENT
     Dosage: 5 MCG; BID; SC
     Route: 058
     Dates: start: 20050706
  2. LANTUS [Concomitant]
  3. HUMALOG [Concomitant]
  4. EXTRA STRENGTH TYLENOL [Concomitant]
  5. STEROIDS [Concomitant]
  6. LANTUS [Concomitant]

REACTIONS (3)
  - DECREASED APPETITE [None]
  - DRUG EFFECT DECREASED [None]
  - EARLY SATIETY [None]
